FAERS Safety Report 15293500 (Version 5)
Quarter: 2020Q1

REPORT INFORMATION
  Report Type: Report from Study
  Country: BR (occurrence: BR)
  Receive Date: 20180820
  Receipt Date: 20200107
  Transmission Date: 20200409
  Serious: Yes (Hospitalization, Other)
  Sender: FDA-Public Use
  Company Number: BR-ROCHE-2170340

PATIENT
  Age: 61 Year
  Sex: Female
  Weight: 99 kg

DRUGS (14)
  1. XOLAIR [Suspect]
     Active Substance: OMALIZUMAB
     Dosage: 300 MG (2 DF)
     Route: 058
     Dates: start: 20170724
  2. OXYGEN. [Concomitant]
     Active Substance: OXYGEN
     Indication: ASTHMA
     Route: 065
  3. VALSARTAN. [Concomitant]
     Active Substance: VALSARTAN
     Indication: HYPERTENSION
     Dosage: 1 DF, QD
     Route: 048
  4. XOLAIR [Suspect]
     Active Substance: OMALIZUMAB
     Route: 058
     Dates: start: 201705
  5. RIVOTRIL [Concomitant]
     Active Substance: CLONAZEPAM
     Indication: INSOMNIA
     Dosage: 10-15 DROPS, QD
     Route: 048
  6. FOSTAIR [Concomitant]
     Active Substance: BECLOMETHASONE\FORMOTEROL
     Indication: ASTHMA
     Dosage: 100 MG, BID AND TID WHEN SHE EXPERIENCED EPISODE
     Route: 055
     Dates: start: 2014
  7. CODEINE [Concomitant]
     Active Substance: CODEINE
     Indication: PAIN
     Dosage: 3 DF, QD
     Route: 048
     Dates: start: 2013
  8. VENALOT [COUMARIN;TROXERUTIN] [Concomitant]
     Indication: CARDIOVASCULAR DISORDER
     Dosage: 1 DF, QD
     Route: 048
  9. XOLAIR [Suspect]
     Active Substance: OMALIZUMAB
     Route: 058
     Dates: start: 20190125
  10. MONTELAIR [Concomitant]
     Active Substance: MONTELUKAST SODIUM
     Indication: LUNG DISORDER
     Dosage: 1 DF, QD
     Route: 048
  11. HIXIZINE [Concomitant]
     Active Substance: HYDROXYZINE HYDROCHLORIDE
     Indication: HYPERSENSITIVITY
     Dosage: 1 DF, QD
     Route: 048
     Dates: start: 2014
  12. XOLAIR [Suspect]
     Active Substance: OMALIZUMAB
     Route: 058
     Dates: start: 20180803
  13. XOLAIR [Suspect]
     Active Substance: OMALIZUMAB
     Indication: ASTHMA
     Route: 058
     Dates: start: 201702
  14. SERTRALINE [Concomitant]
     Active Substance: SERTRALINE HYDROCHLORIDE
     Indication: DEPRESSION
     Dosage: 1 DF, QD
     Route: 048
     Dates: start: 2004

REACTIONS (37)
  - Asthma [Recovered/Resolved]
  - Spinal pain [Recovering/Resolving]
  - Cough [Recovering/Resolving]
  - Asthmatic crisis [Unknown]
  - Fatigue [Recovering/Resolving]
  - Neck pain [Recovering/Resolving]
  - Crystal urine [Unknown]
  - Arthralgia [Recovering/Resolving]
  - Secretion discharge [Recovering/Resolving]
  - Asthenia [Unknown]
  - Haemorrhage [Unknown]
  - Cataract [Not Recovered/Not Resolved]
  - Cyanosis [Recovering/Resolving]
  - Weight increased [Unknown]
  - Aphonia [Unknown]
  - Mobility decreased [Unknown]
  - Blood pressure decreased [Recovering/Resolving]
  - Astigmatism [Not Recovered/Not Resolved]
  - Urine output decreased [Unknown]
  - Malaise [Recovering/Resolving]
  - Back pain [Recovering/Resolving]
  - Drug ineffective [Unknown]
  - Dyspnoea [Recovering/Resolving]
  - Feeling abnormal [Unknown]
  - Malaise [Unknown]
  - Nosocomial infection [Unknown]
  - Blood pressure increased [Recovering/Resolving]
  - Oxygen consumption decreased [Unknown]
  - Arthropathy [Unknown]
  - Respiratory disorder [Recovering/Resolving]
  - Low density lipoprotein increased [Recovering/Resolving]
  - Visual impairment [Not Recovered/Not Resolved]
  - Pain [Recovering/Resolving]
  - Productive cough [Recovering/Resolving]
  - Skin discolouration [Recovering/Resolving]
  - Body temperature decreased [Recovering/Resolving]
  - Pain in extremity [Recovering/Resolving]

NARRATIVE: CASE EVENT DATE: 201710
